FAERS Safety Report 17272310 (Version 2)
Quarter: 2020Q1

REPORT INFORMATION
  Report Type: Spontaneous
  Country: FR (occurrence: FR)
  Receive Date: 20200115
  Receipt Date: 20200325
  Transmission Date: 20200409
  Serious: Yes (Hospitalization)
  Sender: FDA-Public Use
  Company Number: FR-CELGENEUS-FRA-20180808458

PATIENT
  Age: 67 Year
  Sex: Female
  Weight: 56 kg

DRUGS (38)
  1. ATORVASTATINE [Concomitant]
     Active Substance: ATORVASTATIN
     Indication: DIABETES MELLITUS
     Dosage: 10 MILLIGRAM
     Route: 048
     Dates: start: 2007
  2. KARDEGIC [Concomitant]
     Active Substance: ASPIRIN DL-LYSINE
     Indication: THROMBOSIS PROPHYLAXIS
     Dosage: 75 MILLIGRAM
     Route: 048
     Dates: start: 2014
  3. ZOPHREN [Concomitant]
     Active Substance: ONDANSETRON
     Indication: PROPHYLAXIS OF NAUSEA AND VOMITING
     Dosage: 8 MILLIGRAM
     Route: 048
     Dates: start: 20180108
  4. ZOPHREN [Concomitant]
     Active Substance: ONDANSETRON
     Dosage: 8 MILLIGRAM
     Route: 048
     Dates: start: 20180405, end: 20180409
  5. BLEPHAGEL [Concomitant]
     Indication: KERATITIS
     Dosage: 2 AS DIRECTED
     Route: 047
     Dates: start: 20180201
  6. VITABACT [Concomitant]
     Active Substance: PICLOXYDINE DIHYDROCHLORIDE
     Indication: BLEPHARITIS
  7. VITAMINE A [Concomitant]
     Active Substance: RETINOL
     Indication: KERATITIS
     Dosage: 1 DROPS
     Route: 047
     Dates: start: 20180201
  8. VENETOCLAX. [Concomitant]
     Active Substance: VENETOCLAX
     Indication: ACUTE MYELOID LEUKAEMIA
     Route: 065
  9. TEMERIT [Concomitant]
     Active Substance: NEBIVOLOL
     Indication: HYPERTENSION
     Dosage: 5 MILLIGRAM
     Route: 048
     Dates: start: 201801
  10. BLEPHAGEL [Concomitant]
     Indication: BLEPHARITIS
  11. CATIONORM [Concomitant]
     Active Substance: CETALKONIUM\GLYCERIN\MINERAL OIL\POLOXAMER 188\TROMETHAMINE\TYLOXAPOL
     Indication: KERATITIS
     Dosage: 1 DROPS
     Route: 047
     Dates: start: 20180301
  12. MYCOSTATINE [Concomitant]
     Active Substance: NYSTATIN
     Dosage: 300000 IU (INTERNATIONAL UNIT)
     Route: 002
     Dates: start: 20180312
  13. PYOSTACINE [Concomitant]
     Active Substance: PRISTINAMYCIN
     Indication: FURUNCLE
     Route: 065
     Dates: start: 20180403, end: 20180404
  14. PYOSTACINE [Concomitant]
     Active Substance: PRISTINAMYCIN
     Route: 065
     Dates: start: 20180814, end: 20180816
  15. AZACITIDINE. [Suspect]
     Active Substance: AZACITIDINE
     Dosage: 75 MICROGRAM/SQ. METER
     Route: 058
     Dates: start: 20180830
  16. LEVOTHYROX [Concomitant]
     Active Substance: LEVOTHYROXINE
     Dosage: 75 MICROGRAM
     Route: 048
     Dates: start: 20180111, end: 2018
  17. CITALOPRAM [Concomitant]
     Active Substance: CITALOPRAM HYDROBROMIDE
     Dosage: 15 MILLIGRAM
     Route: 048
     Dates: start: 2018
  18. VITAMINE A [Concomitant]
     Active Substance: RETINOL
     Indication: BLEPHARITIS
  19. SEROPLEX [Concomitant]
     Active Substance: ESCITALOPRAM OXALATE
     Indication: DEPRESSION
     Dosage: 15 MILLIGRAM
     Route: 048
     Dates: start: 201801
  20. PYOSTACINE [Concomitant]
     Active Substance: PRISTINAMYCIN
     Indication: URINARY TRACT INFECTION BACTERIAL
     Route: 065
     Dates: start: 20180501, end: 20180502
  21. LAROXYL [Concomitant]
     Active Substance: AMITRIPTYLINE HYDROCHLORIDE
     Indication: DEPRESSION
     Dosage: 25 MILLIGRAM
     Route: 048
     Dates: start: 1982
  22. CITALOPRAM [Concomitant]
     Active Substance: CITALOPRAM HYDROBROMIDE
     Indication: DEPRESSION
     Dosage: 20 MILLIGRAM
     Route: 048
     Dates: start: 20180109, end: 2018
  23. BROMAZEPAM [Concomitant]
     Active Substance: BROMAZEPAM
     Indication: ANXIETY
  24. FUSIDIQUE [Concomitant]
     Indication: FURUNCLE
     Dosage: 2 AS DIRECTED
     Route: 061
     Dates: start: 20180403
  25. NEULASTA [Concomitant]
     Active Substance: PEGFILGRASTIM
     Indication: PROPHYLAXIS
     Dosage: .6 MILLILITER
     Route: 058
     Dates: start: 20180510, end: 20180802
  26. RASBURICASE [Concomitant]
     Active Substance: RASBURICASE
     Indication: PROPHYLAXIS
     Dosage: 7.5 MILLIGRAM
     Route: 041
     Dates: start: 20180108, end: 20180111
  27. AZACITIDINE. [Suspect]
     Active Substance: AZACITIDINE
     Indication: ACUTE MYELOID LEUKAEMIA
     Dosage: 75 MICROGRAM/SQ. METER
     Route: 058
     Dates: start: 20180108, end: 20180801
  28. LEVOTHYROX [Concomitant]
     Active Substance: LEVOTHYROXINE
     Indication: HYPOTHYROIDISM
     Dosage: 87.5 MICROGRAM
     Route: 048
     Dates: start: 2002, end: 20180110
  29. IMOVANE [Concomitant]
     Active Substance: ZOPICLONE
     Indication: PROPHYLAXIS
     Dosage: 3.75 MILLIGRAM
     Route: 048
     Dates: start: 20180109
  30. CATIONORM [Concomitant]
     Active Substance: CETALKONIUM\GLYCERIN\MINERAL OIL\POLOXAMER 188\TROMETHAMINE\TYLOXAPOL
     Indication: BLEPHARITIS
  31. MYCOSTATINE [Concomitant]
     Active Substance: NYSTATIN
     Indication: GINGIVITIS
     Dosage: 300000 IU (INTERNATIONAL UNIT)
     Route: 002
     Dates: start: 20180109, end: 20180121
  32. NEULASTA [Concomitant]
     Active Substance: PEGFILGRASTIM
     Dosage: .6 MILLILITER
     Route: 058
  33. LEVOTHYROX [Concomitant]
     Active Substance: LEVOTHYROXINE
     Dosage: 100 MICROGRAM
     Route: 048
     Dates: start: 2018
  34. NEBIVOLOL. [Concomitant]
     Active Substance: NEBIVOLOL
     Indication: HYPERTENSION
     Dosage: 10 MILLIGRAM
     Route: 048
     Dates: start: 20180108
  35. VISMED MULTI [Concomitant]
     Indication: KERATITIS
     Dosage: 4 DROPS
     Route: 047
     Dates: start: 20180201
  36. VISMED MULTI [Concomitant]
     Indication: BLEPHARITIS
  37. VITABACT [Concomitant]
     Active Substance: PICLOXYDINE DIHYDROCHLORIDE
     Indication: KERATITIS
     Dosage: 3 DROPS
     Route: 047
     Dates: start: 20180201
  38. BROMAZEPAM [Concomitant]
     Active Substance: BROMAZEPAM
     Indication: PROPHYLAXIS
     Dosage: 1 DROPS
     Route: 048
     Dates: start: 20180205

REACTIONS (1)
  - Subcutaneous abscess [Recovered/Resolved]

NARRATIVE: CASE EVENT DATE: 20180817
